FAERS Safety Report 11880294 (Version 1)
Quarter: 2015Q4

REPORT INFORMATION
  Report Type: Spontaneous
  Country: US (occurrence: US)
  Receive Date: 20151230
  Receipt Date: 20151230
  Transmission Date: 20160305
  Serious: Yes (Death, Life-Threatening)
  Sender: FDA-Public Use
  Company Number: US-FRESENIUS KABI-FK201506915

PATIENT
  Age: 46 Year
  Sex: Female

DRUGS (6)
  1. PROPRANOLOL HYDROCHLORIDE (MANUFACTURER UNKNOWN) [Suspect]
     Active Substance: PROPRANOLOL HYDROCHLORIDE
     Indication: PRODUCT USED FOR UNKNOWN INDICATION
     Route: 042
  2. THIMAZOLE [Concomitant]
     Active Substance: METHIMAZOLE
     Indication: PRODUCT USED FOR UNKNOWN INDICATION
     Route: 065
  3. POTASSIUM IODIDE [Concomitant]
     Active Substance: POTASSIUM IODIDE
     Indication: PRODUCT USED FOR UNKNOWN INDICATION
     Route: 065
  4. PROPRANOLOL HYDROCHLORIDE (MANUFACTURER UNKNOWN) [Suspect]
     Active Substance: PROPRANOLOL HYDROCHLORIDE
     Route: 048
  5. THIAMAZOLE [Concomitant]
     Active Substance: METHIMAZOLE
     Indication: PRODUCT USED FOR UNKNOWN INDICATION
     Route: 065
  6. STEROIDS NOS [Concomitant]
     Active Substance: UNSPECIFIED INGREDIENT
     Indication: PRODUCT USED FOR UNKNOWN INDICATION
     Route: 065

REACTIONS (4)
  - Bradycardia [Recovered/Resolved with Sequelae]
  - Circulatory collapse [Not Recovered/Not Resolved]
  - Multi-organ failure [Fatal]
  - Cardiac arrest [Recovered/Resolved with Sequelae]
